FAERS Safety Report 6840134-5 (Version None)
Quarter: 2010Q3

REPORT INFORMATION
  Report Type: 
  Country: None (occurrence: None)
  Receive Date: 20100713
  Receipt Date: 20100713
  Transmission Date: 20110219
  Serious: Yes (Other)
  Sender: FDA-Public Use
  Company Number: None

PATIENT
  Age: 60 Year
  Sex: Male
  Weight: 83.9154 kg

DRUGS (1)
  1. FLOMAX [Suspect]
     Indication: PROSTATE CANCER
     Dates: start: 20080101, end: 20090101

REACTIONS (7)
  - ANXIETY [None]
  - APATHY [None]
  - CRYING [None]
  - DEPRESSION [None]
  - EMOTIONAL DISORDER [None]
  - PANIC DISORDER [None]
  - PARANOIA [None]
